FAERS Safety Report 7775035-1 (Version None)
Quarter: 2011Q3

REPORT INFORMATION
  Report Type: 
  Country: None (occurrence: None)
  Receive Date: 20110923
  Receipt Date: 20110912
  Transmission Date: 20111222
  Serious: Yes (Other)
  Sender: FDA-Public Use
  Company Number: GB-ELI_LILLY_AND_COMPANY-GB201108003669

PATIENT
  Age: 58 Year
  Sex: Male
  Weight: 85 kg

DRUGS (10)
  1. DIAZEPAM [Concomitant]
     Dosage: UNK, PRN
  2. OMEPRAZOLE [Concomitant]
     Dosage: 20 MG, QD
  3. GLICLAZIDE [Concomitant]
     Dosage: 80 MG, BID
  4. INSULIN [Concomitant]
  5. DULOXETINE HYDROCHLORIDE [Suspect]
     Indication: ANXIETY
     Dosage: 30 MG, UNK
     Route: 048
     Dates: start: 20110723, end: 20110727
  6. ROSUVASTATIN [Concomitant]
     Dosage: 5 MG, QD
  7. TEMGESIC [Concomitant]
     Dosage: 400 UG, QID
  8. TRIMETHOPRIM [Concomitant]
     Dosage: 400 MG, BID
  9. MEBEVERINE [Concomitant]
     Dosage: 1 DF, TID
  10. RAMIPRIL [Concomitant]
     Dosage: 2.5 MG, UNK

REACTIONS (5)
  - AGITATION [None]
  - HALLUCINATION [None]
  - SUICIDAL IDEATION [None]
  - POOR QUALITY SLEEP [None]
  - PSYCHOTIC DISORDER [None]
